FAERS Safety Report 17045534 (Version 1)
Quarter: 2019Q4

REPORT INFORMATION
  Report Type: Other
  Country: US (occurrence: US)
  Receive Date: 20191118
  Receipt Date: 20191118
  Transmission Date: 20200122
  Serious: No
  Sender: FDA-Public Use
  Company Number: US-LEADIANT BIOSCIENCES INC-2019STPI000167

PATIENT

DRUGS (11)
  1. INDOMETHACIN SODIUM [Concomitant]
     Active Substance: INDOMETHACIN SODIUM
  2. ERYTHROCIN #2 [Concomitant]
  3. K PHOS NEUTRAL [Concomitant]
     Active Substance: POTASSIUM PHOSPHATE, MONOBASIC\SODIUM PHOSPHATE, DIBASIC, ANHYDROUS\SODIUM PHOSPHATE, MONOBASIC, MONOHYDRATE
  4. CYSTARAN [Suspect]
     Active Substance: CYSTEAMINE HYDROCHLORIDE
     Indication: CYSTINOSIS
     Dosage: 1 DROP EVERY HOUR WHILE AWAKE
     Route: 047
     Dates: start: 20180522
  5. FERROUS SULFATE. [Concomitant]
     Active Substance: FERROUS SULFATE
  6. ROCALTROL [Concomitant]
     Active Substance: CALCITRIOL
  7. POTASSIUM [Concomitant]
     Active Substance: POTASSIUM
  8. CYSTAGON [Concomitant]
     Active Substance: CYSTEAMINE BITARTRATE
  9. NIZATIDINE. [Concomitant]
     Active Substance: NIZATIDINE
  10. MIRALAX [Concomitant]
     Active Substance: POLYETHYLENE GLYCOL 3350
  11. SENNA ACUTIFOLIA [Concomitant]

REACTIONS (1)
  - Eye irritation [Not Recovered/Not Resolved]

NARRATIVE: CASE EVENT DATE: 201904
